FAERS Safety Report 21031798 (Version 1)
Quarter: 2022Q3

REPORT INFORMATION
  Report Type: Spontaneous
  Country: CL (occurrence: CL)
  Receive Date: 20220701
  Receipt Date: 20220701
  Transmission Date: 20221027
  Serious: Yes (Other)
  Sender: FDA-Public Use
  Company Number: CL-ORGANON-O2206CHL002562

PATIENT
  Sex: Female

DRUGS (1)
  1. ETONOGESTREL [Suspect]
     Active Substance: ETONOGESTREL
     Dosage: 1 IMPLANT
     Route: 059
     Dates: start: 201404

REACTIONS (9)
  - Pregnancy with implant contraceptive [Recovered/Resolved]
  - Abortion [Unknown]
  - Surgery [Unknown]
  - Device dislocation [Not Recovered/Not Resolved]
  - Unintended pregnancy [Recovered/Resolved]
  - Device issue [Not Recovered/Not Resolved]
  - Complication of device removal [Not Recovered/Not Resolved]
  - Complication associated with device [Not Recovered/Not Resolved]
  - Incorrect product administration duration [Unknown]

NARRATIVE: CASE EVENT DATE: 20170401
